FAERS Safety Report 22737587 (Version 2)
Quarter: 2024Q1

REPORT INFORMATION
  Report Type: Spontaneous
  Country: CA (occurrence: CA)
  Receive Date: 20230721
  Receipt Date: 20240125
  Transmission Date: 20240410
  Serious: Yes (Other)
  Sender: FDA-Public Use
  Company Number: CA-AstraZeneca-2023A162623

PATIENT
  Age: 50 Year
  Sex: Female

DRUGS (2)
  1. TRASTUZUMAB DERUXTECAN [Suspect]
     Active Substance: TRASTUZUMAB DERUXTECAN
     Indication: HER2 positive breast cancer
     Dosage: UNK
     Route: 042
  2. TRASTUZUMAB DERUXTECAN [Suspect]
     Active Substance: TRASTUZUMAB DERUXTECAN
     Dosage: 500 MG, ONCE EVERY 3 WK
     Route: 042

REACTIONS (3)
  - Malignant neoplasm progression [Recovered/Resolved]
  - Myelosuppression [Recovered/Resolved]
  - Neutrophil count decreased [Recovered/Resolved]
